FAERS Safety Report 22314472 (Version 2)
Quarter: 2023Q2

REPORT INFORMATION
  Report Type: Report from Study
  Country: CN (occurrence: CN)
  Receive Date: 20230512
  Receipt Date: 20230523
  Transmission Date: 20230722
  Serious: Yes (Life-Threatening)
  Sender: FDA-Public Use
  Company Number: CN-PFIZER INC-PV202300083815

PATIENT
  Age: 19 Year
  Sex: Male
  Weight: 50 kg

DRUGS (5)
  1. CYTARABINE [Suspect]
     Active Substance: CYTARABINE
     Indication: Acute myeloid leukaemia
     Dosage: 1600 MG, QD
     Route: 041
     Dates: start: 20230222, end: 20230226
  2. MITOXANTRONE [Suspect]
     Active Substance: MITOXANTRONE HYDROCHLORIDE
     Indication: Acute myeloid leukaemia
     Dosage: 9.6 MG, QD
     Route: 041
     Dates: start: 20230222, end: 20230226
  3. ETOPOSIDE [Suspect]
     Active Substance: ETOPOSIDE
     Indication: Acute myeloid leukaemia
     Dosage: 160 MG, 1X/DAY
     Route: 041
     Dates: start: 20230222, end: 20230224
  4. INVESTIGATIONAL PRODUCT [Suspect]
     Active Substance: INVESTIGATIONAL PRODUCT
     Indication: Acute myeloid leukaemia
     Dosage: 1X/DAY
     Route: 041
     Dates: start: 20230221, end: 20230221
  5. INVESTIGATIONAL PRODUCT [Suspect]
     Active Substance: INVESTIGATIONAL PRODUCT
     Dosage: 2X/DAY
     Route: 041
     Dates: start: 20230222, end: 20230228

REACTIONS (1)
  - Septic shock [Recovered/Resolved]

NARRATIVE: CASE EVENT DATE: 20230405
